FAERS Safety Report 14531010 (Version 1)
Quarter: 2018Q1

REPORT INFORMATION
  Report Type: Spontaneous
  Country: US (occurrence: US)
  Receive Date: 20180213
  Receipt Date: 20180213
  Transmission Date: 20180509
  Serious: Yes (Disabling)
  Sender: FDA-Public Use
  Company Number: None

PATIENT
  Age: 68 Year
  Sex: Female
  Weight: 67.5 kg

DRUGS (11)
  1. HUMIRA [Suspect]
     Active Substance: ADALIMUMAB
     Indication: PSORIASIS
     Dosage: ?          QUANTITY:1 INJECTION(S);OTHER FREQUENCY:EVERY 18 DAYS;?
     Route: 058
  2. CALCIUM [Concomitant]
     Active Substance: CALCIUM
  3. PROBIOTIC [Concomitant]
     Active Substance: PROBIOTICS NOS
  4. CITRUCEL [Concomitant]
     Active Substance: METHYLCELLULOSE (4000 MPA.S)
  5. SYNTHROID [Concomitant]
     Active Substance: LEVOTHYROXINE SODIUM
  6. ELIDEL [Concomitant]
     Active Substance: PIMECROLIMUS
  7. VITAMIN D [Concomitant]
     Active Substance: CHOLECALCIFEROL
  8. VAGIFEM [Concomitant]
     Active Substance: ESTRADIOL
  9. LOW DOSE ASPIRNI [Concomitant]
  10. CLOBETASOL [Concomitant]
     Active Substance: CLOBETASOL
  11. MELATONIN [Concomitant]
     Active Substance: MELATONIN

REACTIONS (2)
  - Palpitations [None]
  - Blood pressure increased [None]

NARRATIVE: CASE EVENT DATE: 20170722
